FAERS Safety Report 7295474-5 (Version None)
Quarter: 2011Q1

REPORT INFORMATION
  Report Type: 
  Country: None (occurrence: None)
  Receive Date: 20110216
  Receipt Date: 20101201
  Transmission Date: 20110831
  Serious: No
  Sender: FDA-Public Use
  Company Number: US-ABBOTT-10P-163-0688835-00

PATIENT
  Sex: Male
  Weight: 86.26 kg

DRUGS (3)
  1. SIMCOR [Suspect]
     Indication: HYPERLIPIDAEMIA
     Dosage: 500/40MG, AT BEDTIME
     Dates: start: 20101109
  2. LISINOPRIL [Concomitant]
     Indication: PRODUCT USED FOR UNKNOWN INDICATION
  3. ALLOPURINOL [Concomitant]
     Indication: PRODUCT USED FOR UNKNOWN INDICATION

REACTIONS (2)
  - PAIN [None]
  - FLUSHING [None]
